FAERS Safety Report 6928163-4 (Version None)
Quarter: 2010Q3

REPORT INFORMATION
  Report Type: 
  Country: None (occurrence: None)
  Receive Date: 20100812
  Receipt Date: 20100810
  Transmission Date: 20110219
  Serious: Yes (Hospitalization)
  Sender: FDA-Public Use
  Company Number: GRT 2010-14180

PATIENT
  Age: 62 Year
  Sex: Female

DRUGS (4)
  1. LIDOCAINE HCL [Suspect]
     Indication: PAIN
     Dosage: 1 PATCH A DAY
     Dates: start: 20100712, end: 20100714
  2. BUPRENOFPHINE TRANSDERMAL PATCH [Concomitant]
  3. UNSPECIFIED DIABETIC DRUGS [Concomitant]
  4. UNSPECIFIED LONG TERM DRUGS [Concomitant]

REACTIONS (1)
  - MYOCARDIAL INFARCTION [None]
